FAERS Safety Report 6551757-5 (Version None)
Quarter: 2010Q1

REPORT INFORMATION
  Report Type: 
  Country: None (occurrence: None)
  Receive Date: 20100126
  Receipt Date: 20100121
  Transmission Date: 20100710
  Serious: Yes (Other)
  Sender: FDA-Public Use
  Company Number: FR-ROCHE-678399

PATIENT
  Sex: Female
  Weight: 60 kg

DRUGS (7)
  1. TRASTUZUMAB [Suspect]
     Indication: BREAST CANCER
     Dosage: FORM: INFUSION SOLUTION. LAST DOSE PRIOR TO SAE: 05 JAN 2010.
     Route: 042
     Dates: start: 20090828, end: 20100105
  2. BEVACIZUMAB [Suspect]
     Indication: BREAST CANCER
     Dosage: FORM: INFUSION SOLUTION. LAST DOSE PRIOR TO SAE: 14 DEC 2009.
     Route: 042
     Dates: start: 20090828, end: 20100105
  3. CAPECITABINE [Suspect]
     Indication: BREAST CANCER
     Dosage: FREQUENCY: 14 DAYS/21. LAST DOSE PRIOR TO SAE: 27 DEC 2009.
     Route: 048
     Dates: start: 20090828, end: 20100105
  4. EFFERALGAN [Concomitant]
     Dates: start: 20090104
  5. LEVOTHYROXINE SODIUM [Concomitant]
     Dates: start: 20030101
  6. FORLAX [Concomitant]
     Dosage: AS NEEDED.
     Dates: start: 20090801
  7. PRIMPERAN TAB [Concomitant]
     Dosage: DRUG: PRIMPERAN PRV
     Dates: start: 20090801

REACTIONS (1)
  - PRESYNCOPE [None]
